FAERS Safety Report 4417994-0 (Version None)
Quarter: 2004Q3

REPORT INFORMATION
  Report Type: 
  Country: None (occurrence: None)
  Receive Date: 20040804
  Receipt Date: 20040716
  Transmission Date: 20050211
  Serious: Yes (Disabling)
  Sender: FDA-Public Use
  Company Number: A01200403356

PATIENT
  Age: 39 Year
  Sex: Female

DRUGS (1)
  1. PLAQUENIL [Suspect]
     Indication: SYSTEMIC LUPUS ERYTHEMATOSUS

REACTIONS (8)
  - CRANIAL NERVE INJURY [None]
  - EYE SWELLING [None]
  - HEADACHE [None]
  - HEARING IMPAIRED [None]
  - PHOTOPHOBIA [None]
  - TINNITUS [None]
  - VISION BLURRED [None]
  - VISUAL DISTURBANCE [None]
